FAERS Safety Report 18665252 (Version 1)
Quarter: 2020Q4

REPORT INFORMATION
  Report Type: Spontaneous
  Country: CN (occurrence: CN)
  Receive Date: 20201225
  Receipt Date: 20201225
  Transmission Date: 20210114
  Serious: Yes (Hospitalization)
  Sender: FDA-Public Use
  Company Number: CN-ASTRAZENECA-2020SF71466

PATIENT
  Age: 56 Year
  Sex: Female

DRUGS (1)
  1. IRESSA [Suspect]
     Active Substance: GEFITINIB
     Dosage: 0.25G UNKNOWN
     Route: 048
     Dates: start: 202009

REACTIONS (10)
  - Dizziness [Unknown]
  - Feeding disorder [Unknown]
  - Visual impairment [Not Recovered/Not Resolved]
  - Asthenia [Unknown]
  - Oropharyngeal discomfort [Unknown]
  - Stiff tongue [Unknown]
  - Dysphagia [Unknown]
  - Tinnitus [Unknown]
  - Ocular hyperaemia [Unknown]
  - Vision blurred [Unknown]

NARRATIVE: CASE EVENT DATE: 202011
